FAERS Safety Report 13490897 (Version 3)
Quarter: 2018Q1

REPORT INFORMATION
  Report Type: Report from Study
  Country: JP (occurrence: JP)
  Receive Date: 20170427
  Receipt Date: 20180109
  Transmission Date: 20180508
  Serious: Yes (Hospitalization)
  Sender: FDA-Public Use
  Company Number: JP-B.I. PHARMACEUTICALS,INC./RIDGEFIELD-2016-BI-61854NB

PATIENT
  Age: 62 Year
  Sex: Female
  Weight: 40.3 kg

DRUGS (1)
  1. TRAJENTA [Suspect]
     Active Substance: LINAGLIPTIN
     Indication: TYPE 2 DIABETES MELLITUS
     Route: 065
     Dates: start: 20150730, end: 20151125

REACTIONS (5)
  - Pancreatitis [Recovering/Resolving]
  - Cholelithiasis [Recovering/Resolving]
  - Cholecystitis acute [Recovering/Resolving]
  - Hepatic function abnormal [Recovering/Resolving]
  - Jaundice cholestatic [Recovering/Resolving]

NARRATIVE: CASE EVENT DATE: 20160829
